FAERS Safety Report 6268278-X (Version None)
Quarter: 2009Q3

REPORT INFORMATION
  Report Type: 
  Country: None (occurrence: None)
  Receive Date: 20090714
  Receipt Date: 20090714
  Transmission Date: 20100115
  Serious: Yes (Other)
  Sender: FDA-Public Use
  Company Number: None

PATIENT
  Age: 52 Year
  Sex: Female
  Weight: 63.5036 kg

DRUGS (1)
  1. THYROID TAB [Suspect]
     Indication: HYPOTHYROIDISM
     Dosage: 60 MG -1 GRAIN- 1 X DAY PO
     Route: 048
     Dates: start: 20090524, end: 20090713

REACTIONS (2)
  - HYPOTHYROIDISM [None]
  - PRODUCT FORMULATION ISSUE [None]
